FAERS Safety Report 7859525-9 (Version None)
Quarter: 2011Q4

REPORT INFORMATION
  Report Type: 
  Country: None (occurrence: None)
  Receive Date: 20111026
  Receipt Date: 20111026
  Transmission Date: 20120403
  Serious: Yes (Hospitalization)
  Sender: FDA-Public Use
  Company Number: None

PATIENT
  Age: 66 Year
  Sex: Male
  Weight: 113 kg

DRUGS (3)
  1. ETODOLAC [Suspect]
     Indication: MUSCULOSKELETAL PAIN
     Dosage: 300 MG BID PO
     Route: 048
     Dates: start: 20060113, end: 20110208
  2. ETODOLAC [Suspect]
     Indication: CARPAL TUNNEL SYNDROME
     Dosage: 300 MG BID PO
     Route: 048
     Dates: start: 20060113, end: 20110208
  3. INDOMETHACIN [Suspect]
     Dosage: 50 MG TID PO
     Route: 048
     Dates: start: 20110128, end: 20110208

REACTIONS (3)
  - DUODENAL ULCER [None]
  - DIZZINESS [None]
  - GASTROINTESTINAL HAEMORRHAGE [None]
